FAERS Safety Report 10965024 (Version 3)
Quarter: 2015Q2

REPORT INFORMATION
  Report Type: Report from Study
  Country: FR (occurrence: FR)
  Receive Date: 20150330
  Receipt Date: 20150629
  Transmission Date: 20150821
  Serious: Yes (Death, Hospitalization, Other)
  Sender: FDA-Public Use
  Company Number: FR-BRISTOL-MYERS SQUIBB COMPANY-BMS-2015-018087

PATIENT
  Age: 36 Year
  Sex: Male
  Weight: 75 kg

DRUGS (4)
  1. ENTECAVIR. [Suspect]
     Active Substance: ENTECAVIR
     Indication: HEPATIC CIRRHOSIS
     Dosage: 0.5 MG, QD
     Route: 065
     Dates: start: 20131206
  2. CORTANCYL [Concomitant]
     Active Substance: PREDNISONE
     Indication: BRAIN OEDEMA
     Dosage: 60 MG, QD
     Route: 065
  3. PRIMPERAN [Concomitant]
     Active Substance: METOCLOPRAMIDE HYDROCHLORIDE
     Indication: VOMITING
     Route: 065
  4. FORTIMEL [Concomitant]
     Active Substance: DIETARY SUPPLEMENT
     Indication: MALNUTRITION
     Route: 065

REACTIONS (6)
  - Shock [Fatal]
  - Gastric ulcer haemorrhage [Fatal]
  - Hepatic cancer metastatic [Fatal]
  - Metastases to lung [Fatal]
  - Intracranial pressure increased [Recovered/Resolved with Sequelae]
  - Metastases to central nervous system [Fatal]

NARRATIVE: CASE EVENT DATE: 201312
